FAERS Safety Report 21895091 (Version 6)
Quarter: 2023Q2

REPORT INFORMATION
  Report Type: Spontaneous
  Country: US (occurrence: US)
  Receive Date: 20230122
  Receipt Date: 20230505
  Transmission Date: 20230721
  Serious: Yes (Other)
  Sender: FDA-Public Use
  Company Number: US-BEH-2023154294

PATIENT
  Age: 35 Year
  Sex: Female
  Weight: 53.515 kg

DRUGS (14)
  1. HAEGARDA [Suspect]
     Active Substance: HUMAN C1-ESTERASE INHIBITOR
     Indication: Hereditary angioedema
     Dosage: 3000 INTERNATIONAL UNIT, BIW
     Route: 058
     Dates: start: 20221222
  2. HAEGARDA [Suspect]
     Active Substance: HUMAN C1-ESTERASE INHIBITOR
     Indication: Prophylaxis
     Dosage: 7000 INTERNATIONAL UNIT, BIW
     Route: 058
     Dates: start: 20221223
  3. HAEGARDA [Suspect]
     Active Substance: HUMAN C1-ESTERASE INHIBITOR
     Indication: Hereditary angioedema
     Dosage: 7000 INTERNATIONAL UNIT/KILOGRAM, BIW
     Route: 058
  4. HAEGARDA [Suspect]
     Active Substance: HUMAN C1-ESTERASE INHIBITOR
     Dosage: 3000 INTERNATIONAL UNIT, BIW
     Route: 058
     Dates: start: 202301
  5. HAEGARDA [Suspect]
     Active Substance: HUMAN C1-ESTERASE INHIBITOR
     Dosage: 3000 INTERNATIONAL UNIT, BIW, EVERY 3-4 DAYS
     Route: 058
     Dates: start: 20221213
  6. HAEGARDA [Suspect]
     Active Substance: HUMAN C1-ESTERASE INHIBITOR
     Indication: Hereditary angioedema
     Dosage: 4000 INTERNATIONAL UNIT, BIW
     Route: 058
     Dates: start: 20221222
  7. HAEGARDA [Suspect]
     Active Substance: HUMAN C1-ESTERASE INHIBITOR
     Indication: Prophylaxis
     Dosage: 7000 INTERNATIONAL UNIT, BIW
     Route: 058
     Dates: start: 20221223
  8. HAEGARDA [Suspect]
     Active Substance: HUMAN C1-ESTERASE INHIBITOR
     Dosage: 4000 INTERNATIONAL UNIT, BIW
     Route: 058
     Dates: start: 202201
  9. HAEGARDA [Suspect]
     Active Substance: HUMAN C1-ESTERASE INHIBITOR
     Dosage: 4000 INTERNATIONAL UNIT, BIW, EVERY 3-4 DAYS
     Route: 058
     Dates: start: 20221213
  10. HAEGARDA [Suspect]
     Active Substance: HUMAN C1-ESTERASE INHIBITOR
     Indication: Hereditary angioedema
     Dosage: 7000 INTERNATIONAL UNIT, BIW
     Route: 058
  11. HAEGARDA [Suspect]
     Active Substance: HUMAN C1-ESTERASE INHIBITOR
     Indication: Prophylaxis
     Dosage: UNK
     Route: 058
  12. HAEGARDA [Suspect]
     Active Substance: HUMAN C1-ESTERASE INHIBITOR
     Indication: Hereditary angioedema
     Dosage: 7000 INTERNATIONAL UNIT, BIW
     Route: 058
  13. FIRAZYR [Concomitant]
     Active Substance: ICATIBANT ACETATE
     Dosage: 1 DOSAGE FORM
     Dates: start: 20230108
  14. FIRAZYR [Concomitant]
     Active Substance: ICATIBANT ACETATE
     Dosage: 1 DOSAGE FORM
     Dates: start: 20230109

REACTIONS (17)
  - Hereditary angioedema [Unknown]
  - Dizziness [Not Recovered/Not Resolved]
  - Motion sickness [Recovered/Resolved]
  - Hereditary angioedema [Recovered/Resolved]
  - Hereditary angioedema [Unknown]
  - Hereditary angioedema [Unknown]
  - Dizziness [Not Recovered/Not Resolved]
  - Brain fog [Not Recovered/Not Resolved]
  - No adverse event [Unknown]
  - Intentional dose omission [Unknown]
  - Dizziness [Recovered/Resolved]
  - Headache [Recovered/Resolved]
  - Brain fog [Recovered/Resolved]
  - Dizziness [Unknown]
  - Hereditary angioedema [Recovered/Resolved]
  - Hereditary angioedema [Recovered/Resolved]
  - Hereditary angioedema [Recovered/Resolved]

NARRATIVE: CASE EVENT DATE: 20230123
